FAERS Safety Report 19624490 (Version 1)
Quarter: 2021Q3

REPORT INFORMATION
  Report Type: Spontaneous
  Country: US (occurrence: US)
  Receive Date: 20210728
  Receipt Date: 20210728
  Transmission Date: 20211014
  Serious: Yes (Other)
  Sender: FDA-Public Use
  Company Number: US-TEVA-2021-US-1935784

PATIENT
  Age: 27 Month
  Sex: Female

DRUGS (9)
  1. DEXAMETHASONE. [Suspect]
     Active Substance: DEXAMETHASONE
     Indication: ASTHMA
     Dosage: TWO?DOSE
     Route: 065
  2. IMMUNOGLOBULIN (IMMUNOGLOBULIN NOS) [Suspect]
     Active Substance: IMMUNE GLOBULIN NOS
     Indication: MULTISYSTEM INFLAMMATORY SYNDROME IN CHILDREN
     Route: 041
  3. IMMUNOGLOBULIN (IMMUNOGLOBULIN NOS) [Suspect]
     Active Substance: IMMUNE GLOBULIN NOS
     Dosage: TWO ADDITIONAL DOSES ON HOSPITAL DAYS 3 AND 4
     Route: 041
  4. PREDNISOLONE. [Suspect]
     Active Substance: PREDNISOLONE
     Indication: MULTISYSTEM INFLAMMATORY SYNDROME IN CHILDREN
     Route: 065
  5. DEXAMETHASONE. [Suspect]
     Active Substance: DEXAMETHASONE
     Indication: VIRAL UPPER RESPIRATORY TRACT INFECTION
  6. ASPIRIN. [Concomitant]
     Active Substance: ASPIRIN
     Indication: MULTISYSTEM INFLAMMATORY SYNDROME IN CHILDREN
     Route: 065
  7. ALBUTEROL. [Concomitant]
     Active Substance: ALBUTEROL
     Indication: ASTHMA
     Route: 065
  8. ALBUTEROL. [Concomitant]
     Active Substance: ALBUTEROL
     Indication: VIRAL UPPER RESPIRATORY TRACT INFECTION
  9. ENOXAPARIN [Concomitant]
     Active Substance: ENOXAPARIN
     Indication: MULTISYSTEM INFLAMMATORY SYNDROME IN CHILDREN
     Route: 065

REACTIONS (2)
  - Systolic hypertension [Recovered/Resolved]
  - Sinus bradycardia [Recovered/Resolved]
